FAERS Safety Report 19069267 (Version 1)
Quarter: 2021Q1

REPORT INFORMATION
  Report Type: Report from Study
  Country: IN (occurrence: IN)
  Receive Date: 20210329
  Receipt Date: 20210329
  Transmission Date: 20210420
  Serious: Yes (Other)
  Sender: FDA-Public Use
  Company Number: NVSC2021IN065139

PATIENT
  Sex: Female

DRUGS (1)
  1. PIVIKTO [Suspect]
     Active Substance: ALPELISIB
     Indication: BREAST CANCER
     Dosage: 150 MG, QD
     Route: 048
     Dates: start: 20210125

REACTIONS (4)
  - Heart rate increased [Unknown]
  - Gastric ulcer [Unknown]
  - Stomatitis [Unknown]
  - Gastric infection [Unknown]
